FAERS Safety Report 15701161 (Version 1)
Quarter: 2018Q4

REPORT INFORMATION
  Report Type: Spontaneous
  Country: US (occurrence: US)
  Receive Date: 20181207
  Receipt Date: 20181207
  Transmission Date: 20190205
  Serious: No
  Sender: FDA-Public Use
  Company Number: US-TEVA-2018-US-982341

PATIENT
  Age: 87 Year
  Sex: Male
  Weight: 86 kg

DRUGS (2)
  1. QUETITAB [Suspect]
     Active Substance: QUETIAPINE
     Route: 065
  2. QUETITAB [Suspect]
     Active Substance: QUETIAPINE
     Indication: DEMENTIA
     Route: 065
     Dates: start: 201811

REACTIONS (3)
  - Wrong technique in product usage process [Unknown]
  - Product use in unapproved indication [Unknown]
  - Insomnia [Unknown]

NARRATIVE: CASE EVENT DATE: 201811
